FAERS Safety Report 13545928 (Version 1)
Quarter: 2017Q2

REPORT INFORMATION
  Report Type: Spontaneous
  Country: US (occurrence: US)
  Receive Date: 20170515
  Receipt Date: 20170515
  Transmission Date: 20170830
  Serious: No
  Sender: FDA-Public Use
  Company Number: US-TEVA-761701USA

PATIENT
  Sex: Female

DRUGS (1)
  1. FENTORA [Suspect]
     Active Substance: FENTANYL CITRATE
     Indication: PAIN
     Dosage: 1-2 TABLETS EVERY 4-6 HOURS
     Route: 065

REACTIONS (3)
  - Pain [Unknown]
  - Discomfort [Unknown]
  - Hyperhidrosis [Unknown]
